FAERS Safety Report 5671928-X (Version None)
Quarter: 2008Q1

REPORT INFORMATION
  Report Type: 
  Country: None (occurrence: None)
  Receive Date: 20080319
  Receipt Date: 20080211
  Transmission Date: 20080703
  Serious: No
  Sender: FDA-Public Use
  Company Number: US-BAYER-200813938NA

PATIENT
  Age: 46 Year
  Sex: Female

DRUGS (9)
  1. MAGNEVIST [Suspect]
     Indication: NUCLEAR MAGNETIC RESONANCE IMAGING
     Dates: start: 20071108, end: 20071108
  2. FLEXERIL [Concomitant]
  3. MOTRIN [Concomitant]
  4. PREMARIN [Concomitant]
  5. FEXOFENADINE [Concomitant]
  6. PAREXTENE [Concomitant]
  7. ACIPHEX [Concomitant]
  8. KLONAZEPAM [Concomitant]
  9. AMITRIPTYLINE HCL [Concomitant]

REACTIONS (3)
  - CHOKING SENSATION [None]
  - FEELING HOT [None]
  - PRURITUS [None]
